FAERS Safety Report 18330734 (Version 2)
Quarter: 2023Q2

REPORT INFORMATION
  Report Type: Report from Study
  Country: US (occurrence: US)
  Receive Date: 20200930
  Receipt Date: 20230518
  Transmission Date: 20230721
  Serious: Yes (Other)
  Sender: FDA-Public Use
  Company Number: US-JAZZ-JPI-P-026493

PATIENT
  Sex: Female
  Weight: 142 kg

DRUGS (11)
  1. XYREM [Suspect]
     Active Substance: SODIUM OXYBATE
     Indication: Insomnia
     Dosage: 2.25 GRAM, BID
     Route: 048
     Dates: start: 20051024
  2. XYREM [Suspect]
     Active Substance: SODIUM OXYBATE
     Indication: Sleep disorder
     Dosage: SINGLE (UNSPECIFIED DOSE CHANGE)
  3. XYREM [Suspect]
     Active Substance: SODIUM OXYBATE
     Indication: Somnolence
     Dosage: 4.5 GRAM, BID
     Route: 048
     Dates: start: 20080829
  4. XYREM [Suspect]
     Active Substance: SODIUM OXYBATE
     Indication: Narcolepsy
  5. XYREM [Suspect]
     Active Substance: SODIUM OXYBATE
     Indication: Cataplexy
  6. BENADRYL [Suspect]
     Active Substance: DIPHENHYDRAMINE HYDROCHLORIDE
     Indication: Product used for unknown indication
     Dosage: UNK
  7. LEVOTHYROXINE [Concomitant]
     Active Substance: LEVOTHYROXINE
     Indication: Hypothyroidism
     Dosage: SINGLE
  8. CALCIUM GLUCONATE [Concomitant]
     Active Substance: CALCIUM GLUCONATE
     Indication: Product used for unknown indication
     Dosage: SINGLE
  9. MAGNESIUM [Concomitant]
     Active Substance: MAGNESIUM
     Indication: Product used for unknown indication
     Dosage: SINGLE
  10. OZEMPIC [Concomitant]
     Active Substance: SEMAGLUTIDE
     Indication: Hypoglycaemia
     Dosage: 1 MG/DOSE (2 MG/1.5 ML)
     Dates: start: 20220201
  11. NUVIGIL [Concomitant]
     Active Substance: ARMODAFINIL
     Indication: Hypersomnia

REACTIONS (13)
  - Central sleep apnoea syndrome [Unknown]
  - Basal cell carcinoma [Unknown]
  - Obstructive sleep apnoea syndrome [Unknown]
  - Hypoglycaemia [Unknown]
  - Eye contusion [Recovered/Resolved]
  - Poor quality sleep [Not Recovered/Not Resolved]
  - Fatigue [Not Recovered/Not Resolved]
  - Somnambulism [Unknown]
  - Fall [Not Recovered/Not Resolved]
  - Contusion [Recovered/Resolved]
  - Skin laceration [Recovered/Resolved]
  - Face injury [Recovered/Resolved]
  - Weight decreased [Unknown]

NARRATIVE: CASE EVENT DATE: 20070101
